FAERS Safety Report 6876909-6 (Version None)
Quarter: 2010Q3

REPORT INFORMATION
  Report Type: 
  Country: None (occurrence: None)
  Receive Date: 20100727
  Receipt Date: 20100715
  Transmission Date: 20110219
  Serious: Yes (Life-Threatening)
  Sender: FDA-Public Use
  Company Number: GB-AMGEN-QUU425816

PATIENT
  Sex: Female

DRUGS (9)
  1. ENBREL [Suspect]
     Indication: RHEUMATOID ARTHRITIS
     Dosage: 50 MG, FREQUENCY UNKNOWN
     Route: 058
     Dates: start: 20050101, end: 20090601
  2. ASPIRIN [Concomitant]
     Dosage: UNKNOWN
  3. CYCLIZINE [Concomitant]
     Dosage: UNKNOWN
  4. VANCOMYCIN [Concomitant]
     Dosage: UNKNOWN
  5. HYDROCORTISONE [Concomitant]
     Dosage: UNKNOWN
  6. SODIUM BICARBONATE [Concomitant]
     Dosage: UNKNOWN
  7. PIPERACILLIN AND TAZOBACTAM [Concomitant]
     Dosage: UNKNOWN
  8. ALFACALCIDOL [Concomitant]
     Dosage: UNKNOWN
  9. FUROSEMIDE [Concomitant]
     Dosage: UNKNOWN

REACTIONS (1)
  - PERICARDIAL EFFUSION [None]
